FAERS Safety Report 5493216-7 (Version None)
Quarter: 2007Q4

REPORT INFORMATION
  Report Type: 
  Country: None (occurrence: None)
  Receive Date: 20071023
  Receipt Date: 20071012
  Transmission Date: 20080405
  Serious: Yes (Other)
  Sender: FDA-Public Use
  Company Number: B0491031A

PATIENT
  Sex: Female

DRUGS (2)
  1. DEROXAT [Suspect]
     Indication: DEPRESSION
     Route: 048
  2. RISPERDAL [Suspect]
     Indication: PHOBIA
     Dosage: 1MG PER DAY

REACTIONS (4)
  - BLADDER DISORDER [None]
  - CONSTIPATION [None]
  - HAEMORRHOIDS [None]
  - URINE OUTPUT DECREASED [None]
